FAERS Safety Report 5128407-8 (Version None)
Quarter: 2006Q4

REPORT INFORMATION
  Report Type: 
  Country: None (occurrence: None)
  Receive Date: 20061017
  Receipt Date: 20061004
  Transmission Date: 20070319
  Serious: Yes (Hospitalization)
  Sender: FDA-Public Use
  Company Number: PHRM2006FR02778

PATIENT
  Age: 38 Year
  Sex: Female

DRUGS (2)
  1. GYNERGENE CAFEINE [Suspect]
     Dosage: 2/200 MG/DAY
     Route: 048
     Dates: start: 20060818, end: 20060818
  2. DAFALGAN [Concomitant]
     Route: 048
     Dates: start: 20060818, end: 20060818

REACTIONS (5)
  - CONFUSIONAL STATE [None]
  - CONVULSION [None]
  - HEADACHE [None]
  - HOT FLUSH [None]
  - PARESIS [None]
